FAERS Safety Report 23763176 (Version 3)
Quarter: 2024Q2

REPORT INFORMATION
  Report Type: Spontaneous
  Country: US (occurrence: US)
  Receive Date: 20240419
  Receipt Date: 20240518
  Transmission Date: 20240716
  Serious: Yes (Hospitalization, Disabling, Other)
  Sender: FDA-Public Use
  Company Number: US-AMGEN-USASP2024073596

PATIENT
  Age: 71 Year
  Sex: Female

DRUGS (21)
  1. VECTIBIX [Suspect]
     Active Substance: PANITUMUMAB
     Indication: Rectal cancer
     Dosage: UNK UNK, Q4WK
     Route: 065
     Dates: start: 20230601, end: 20231207
  2. VECTIBIX [Suspect]
     Active Substance: PANITUMUMAB
     Dosage: UNK UNK, Q4WK
     Route: 065
     Dates: start: 2023, end: 20240214
  3. LONSURF [Suspect]
     Active Substance: TIPIRACIL HYDROCHLORIDE\TRIFLURIDINE
     Indication: Rectal cancer
     Dosage: 60 MILLIGRAM, BID (DAYS 1-5 AND 8-12 OF 28 DAY CYCLE; 100 MG, 3 TABLETS IN MORNING AND 2 IN EVENING)
     Route: 048
     Dates: start: 20230428, end: 20240214
  4. HEPARIN [Suspect]
     Active Substance: HEPARIN SODIUM
     Indication: Product used for unknown indication
     Dosage: UNK
     Route: 042
     Dates: end: 20230818
  5. PANTOPRAZOLE [Suspect]
     Active Substance: PANTOPRAZOLE
     Indication: Product used for unknown indication
     Dosage: UNK
     Route: 065
     Dates: start: 2022, end: 2023
  6. BEVACIZUMAB [Concomitant]
     Active Substance: BEVACIZUMAB
     Dosage: UNK
  7. TYLENOL [Concomitant]
     Active Substance: ACETAMINOPHEN
     Dosage: 3900 MILLIGRAM, AS NEEDED
     Route: 048
  8. VENTOLIN HFA [Concomitant]
     Active Substance: ALBUTEROL SULFATE
     Dosage: UNK
  9. Doxicycline [Concomitant]
     Dosage: 100 MILLIGRAM
  10. MAGNESIUM OXIDE [Concomitant]
     Active Substance: MAGNESIUM OXIDE
     Dosage: UNK MILLIGRAM
  11. ZOFRAN [Concomitant]
     Active Substance: ONDANSETRON HYDROCHLORIDE
     Indication: Nausea
     Dosage: 24 MILLIGRAM, QD
     Route: 048
  12. PREDNISONE [Concomitant]
     Active Substance: PREDNISONE
     Dosage: UNK
  13. COMPAZINE [Concomitant]
     Active Substance: PROCHLORPERAZINE MALEATE
     Dosage: 40 MILLIGRAM, AS NECESSARY
     Route: 048
  14. CRANBERRY [Concomitant]
     Active Substance: CRANBERRY
     Dosage: 12600 MILLIGRAM, Q8H
     Route: 048
  15. SIMETHICONE (DIMETHICONE) [Concomitant]
     Active Substance: DIMETHICONE
     Dosage: 80 MILLIGRAM, Q6H (CHEW, AS NEEDED)
     Route: 048
  16. CALTRATE WITH VITAMIN D [Concomitant]
     Active Substance: CALCIUM CARBONATE\CHOLECALCIFEROL
     Dosage: 600 MILLIGRAM, Q8H
     Route: 048
  17. ATIVAN [Concomitant]
     Active Substance: LORAZEPAM
     Indication: Nausea
     Dosage: 0.25 MILLIGRAM, Q4H (AS NEEDED, 2 MG/ML CONC. 30 ML)
     Route: 048
  18. ATIVAN [Concomitant]
     Active Substance: LORAZEPAM
     Indication: Anxiety
  19. ATIVAN [Concomitant]
     Active Substance: LORAZEPAM
     Indication: Insomnia
  20. MAGNESIUM [Concomitant]
     Active Substance: MAGNESIUM
     Dosage: 600 MILLIGRAM, QD
     Route: 048
  21. METAMUCIL [Concomitant]
     Active Substance: PLANTAGO SEED
     Dosage: UNK UNK, QD
     Route: 048

REACTIONS (32)
  - Kidney infection [Unknown]
  - Alopecia [Not Recovered/Not Resolved]
  - Weight decreased [Recovering/Resolving]
  - Decreased appetite [Recovering/Resolving]
  - Deep vein thrombosis [Unknown]
  - Pulmonary artery thrombosis [Unknown]
  - Haematuria [Unknown]
  - Febrile neutropenia [Unknown]
  - Atelectasis [Unknown]
  - Pancytopenia [Recovered/Resolved]
  - Hypotension [Unknown]
  - Hydronephrosis [Unknown]
  - Hypomagnesaemia [Unknown]
  - Sacral pain [Unknown]
  - Neuropathy peripheral [Unknown]
  - Contrast media allergy [Not Recovered/Not Resolved]
  - Dizziness [Unknown]
  - Nausea [Recovering/Resolving]
  - Fatigue [Not Recovered/Not Resolved]
  - Diarrhoea [Recovering/Resolving]
  - Ageusia [Unknown]
  - Procedural pain [Unknown]
  - Epistaxis [Unknown]
  - Blood calcium decreased [Unknown]
  - Hyperaesthesia [Unknown]
  - Swelling [Unknown]
  - Muscle strain [Unknown]
  - Dysphagia [Unknown]
  - Rash pruritic [Unknown]
  - Gastrointestinal disorder [Unknown]
  - Hospice care [Unknown]
  - Off label use [Unknown]

NARRATIVE: CASE EVENT DATE: 20230101
